FAERS Safety Report 5849040-6 (Version None)
Quarter: 2008Q3

REPORT INFORMATION
  Report Type: 
  Country: None (occurrence: None)
  Receive Date: 20080815
  Receipt Date: 20080804
  Transmission Date: 20090109
  Serious: Yes (Death, Hospitalization)
  Sender: FDA-Public Use
  Company Number: 2008AL004024

PATIENT
  Age: 78 Year
  Sex: Female
  Weight: 47.6277 kg

DRUGS (10)
  1. DIGOXIN [Suspect]
     Indication: HEART RATE IRREGULAR
     Dosage: 0.125MG DAILY PO
     Route: 048
     Dates: start: 20071201, end: 20080115
  2. FLOMAX [Concomitant]
  3. PLAVIX [Concomitant]
  4. LASIX [Concomitant]
  5. ARICEPT [Concomitant]
  6. DIAZEPAM [Concomitant]
  7. OPENERX [Concomitant]
  8. SPIRIVA [Concomitant]
  9. FERROUS [Concomitant]
  10. RYTHMOL [Concomitant]

REACTIONS (4)
  - ANAEMIA [None]
  - CHRONIC OBSTRUCTIVE PULMONARY DISEASE [None]
  - LUNG NEOPLASM MALIGNANT [None]
  - RESPIRATORY ARREST [None]
